FAERS Safety Report 4960689-5 (Version None)
Quarter: 2006Q2

REPORT INFORMATION
  Report Type: 
  Country: None (occurrence: None)
  Receive Date: 20060403
  Receipt Date: 20051012
  Transmission Date: 20061013
  Serious: Yes (Hospitalization)
  Sender: FDA-Public Use
  Company Number: US-MERCK-0510USA06876

PATIENT
  Age: 66 Year
  Sex: Female
  Weight: 72 kg

DRUGS (4)
  1. VIOXX [Suspect]
     Indication: ARTHRALGIA
     Route: 048
     Dates: start: 20030101, end: 20040901
  2. PAXIL [Concomitant]
     Route: 065
  3. DETROL [Concomitant]
     Route: 065
  4. [THERAPY UNSPECIFIED] [Concomitant]
     Route: 065

REACTIONS (6)
  - CEREBROVASCULAR ACCIDENT [None]
  - CHEST PAIN [None]
  - DIZZINESS [None]
  - FATIGUE [None]
  - HEADACHE [None]
  - HYPOAESTHESIA [None]
